FAERS Safety Report 10184229 (Version 4)
Quarter: 2014Q2

REPORT INFORMATION
  Report Type: Spontaneous
  Country: US (occurrence: US)
  Receive Date: 20140520
  Receipt Date: 20140521
  Transmission Date: 20141212
  Serious: No
  Sender: FDA-Public Use
  Company Number: US-ASTRAZENECA-2013SE71455

PATIENT
  Age: 857 Month
  Sex: Female
  Weight: 63.5 kg

DRUGS (6)
  1. RHINOCORT AQUA [Suspect]
     Indication: MULTIPLE ALLERGIES
     Route: 045
     Dates: start: 2011
  2. RHINOCORT AQUA [Suspect]
     Indication: MULTIPLE ALLERGIES
     Dosage: 1 SPRAY PER NOSTRIL PRN
     Route: 045
  3. RHINOCORT AQUA [Suspect]
     Indication: MULTIPLE ALLERGIES
     Dosage: 1 SPRAY PER NOSTRIL TWICE DAILY
     Route: 045
  4. AMLODIPINE [Concomitant]
     Indication: HYPERTENSION
  5. METHOTREXATE [Concomitant]
     Indication: RHEUMATOID ARTHRITIS
  6. SIMVASTATIN [Concomitant]
     Indication: BLOOD CHOLESTEROL INCREASED

REACTIONS (8)
  - Upper-airway cough syndrome [Not Recovered/Not Resolved]
  - Rheumatoid arthritis [Unknown]
  - Disease recurrence [Unknown]
  - Throat irritation [Unknown]
  - Circumstance or information capable of leading to medication error [Unknown]
  - Drug dose omission [Unknown]
  - Intentional product misuse [Not Recovered/Not Resolved]
  - Drug ineffective [Unknown]
